FAERS Safety Report 14773763 (Version 3)
Quarter: 2022Q1

REPORT INFORMATION
  Report Type: Report from Study
  Country: US (occurrence: None)
  Receive Date: 20180418
  Receipt Date: 20220216
  Transmission Date: 20220423
  Serious: Yes (Hospitalization, Other)
  Sender: FDA-Public Use
  Company Number: US-ROCHE-1993902

PATIENT
  Age: 22 Year
  Sex: Female
  Weight: 42.4 kg

DRUGS (9)
  1. ATEZOLIZUMAB [Suspect]
     Active Substance: ATEZOLIZUMAB
     Indication: Alveolar soft part sarcoma
     Dosage: TAC 1: OVER 60 MINUTES ON DAY 1 FOR 21 DAY CYCLE.
     Route: 041
     Dates: start: 20170508
  2. ATEZOLIZUMAB [Suspect]
     Active Substance: ATEZOLIZUMAB
     Dosage: TAC 1: OVER 60 MINUTES ON DAY 1 FOR 21 DAY CYCLE.
     Route: 042
     Dates: start: 20170530
  3. ATEZOLIZUMAB [Suspect]
     Active Substance: ATEZOLIZUMAB
     Dosage: TAC 1: OVER 60 MINUTES ON DAY 1 FOR 21 DAY CYCLE.
     Route: 042
     Dates: start: 20170731
  4. ATEZOLIZUMAB [Suspect]
     Active Substance: ATEZOLIZUMAB
     Route: 042
     Dates: start: 20170619
  5. ATEZOLIZUMAB [Suspect]
     Active Substance: ATEZOLIZUMAB
     Route: 042
     Dates: start: 20170710
  6. ATEZOLIZUMAB [Suspect]
     Active Substance: ATEZOLIZUMAB
     Route: 042
     Dates: start: 20170822
  7. ATEZOLIZUMAB [Suspect]
     Active Substance: ATEZOLIZUMAB
     Route: 042
     Dates: start: 20170912
  8. ATEZOLIZUMAB [Suspect]
     Active Substance: ATEZOLIZUMAB
     Route: 042
     Dates: start: 20180206
  9. ATEZOLIZUMAB [Suspect]
     Active Substance: ATEZOLIZUMAB
     Route: 042
     Dates: start: 20180529

REACTIONS (6)
  - Pulmonary haemorrhage [Recovering/Resolving]
  - Alanine aminotransferase increased [Unknown]
  - Tremor [Unknown]
  - Fracture [Unknown]
  - Pulmonary haemorrhage [Recovering/Resolving]
  - Tumour pain [Unknown]

NARRATIVE: CASE EVENT DATE: 20170801
